FAERS Safety Report 4614370-2 (Version None)
Quarter: 2005Q2

REPORT INFORMATION
  Report Type: 
  Country: None (occurrence: None)
  Receive Date: 20050311
  Receipt Date: 20050110
  Transmission Date: 20051028
  Serious: No
  Sender: FDA-Public Use
  Company Number: 2004-00706

PATIENT
  Age: 69 Year
  Sex: Male
  Weight: 83.4 kg

DRUGS (6)
  1. VELCADE [Suspect]
     Indication: MULTIPLE MYELOMA
     Dosage: 1.30 MG/M2, 2/WEEK, INTRAVENOUS
     Route: 042
     Dates: start: 20040928
  2. DIGOXIN [Concomitant]
  3. COMPAZINE [Concomitant]
  4. TYLENOL [Concomitant]
  5. ZOMETA [Concomitant]
  6. PAMIDRONATE DISODIUM [Concomitant]

REACTIONS (8)
  - ABDOMINAL PAIN [None]
  - CONSTIPATION [None]
  - DIARRHOEA [None]
  - INSOMNIA [None]
  - NAUSEA [None]
  - NEUROPATHY PERIPHERAL [None]
  - PAIN [None]
  - PALPITATIONS [None]
